FAERS Safety Report 5780685-8 (Version None)
Quarter: 2008Q2

REPORT INFORMATION
  Report Type: 
  Country: None (occurrence: None)
  Receive Date: 20080620
  Receipt Date: 20080611
  Transmission Date: 20081010
  Serious: Yes (Hospitalization)
  Sender: FDA-Public Use
  Company Number: FR-BOEHRINGER INGELHEIM GMBH, GERMANY-2008-FF-00310FF

PATIENT
  Age: 63 Year
  Sex: Female

DRUGS (6)
  1. SPIRIVA [Suspect]
     Route: 055
     Dates: start: 20071101
  2. ALTEIS [Concomitant]
     Route: 048
  3. ALDACTAZINE [Concomitant]
     Route: 048
  4. CHONDROSULF [Concomitant]
     Route: 048
  5. VITAMIN D3 [Concomitant]
     Route: 048
  6. FENOFIBRATE [Concomitant]
     Route: 048

REACTIONS (1)
  - SCLERODERMA [None]
